FAERS Safety Report 14916299 (Version 1)
Quarter: 2018Q2

REPORT INFORMATION
  Report Type: Spontaneous
  Country: IT (occurrence: IT)
  Receive Date: 20180519
  Receipt Date: 20180519
  Transmission Date: 20180711
  Serious: Yes (Other)
  Sender: FDA-Public Use
  Company Number: IT-HETERO CORPORATE-HET2018IT00441

PATIENT
  Age: 46 Year
  Sex: Male

DRUGS (3)
  1. CEFOXITIN [Suspect]
     Active Substance: CEFOXITIN SODIUM
     Indication: MYCOBACTERIUM ABSCESSUS INFECTION
     Dosage: 3 GRAM, QID
     Route: 065
  2. CILASTATIN, IMIPENEM [Suspect]
     Active Substance: CILASTATIN SODIUM\IMIPENEM
     Indication: MYCOBACTERIUM ABSCESSUS INFECTION
     Dosage: 500 MILLIGRAM, QID
     Route: 065
  3. LINEZOLID. [Suspect]
     Active Substance: LINEZOLID
     Indication: MYCOBACTERIUM ABSCESSUS INFECTION
     Dosage: 600 MILLIGRAM, BID
     Route: 065

REACTIONS (8)
  - Thrombocytopenia [Recovering/Resolving]
  - Neurosensory hypoacusis [None]
  - Ototoxicity [None]
  - Therapy cessation [None]
  - Intentional product use issue [None]
  - Drug intolerance [Recovering/Resolving]
  - Electrocardiogram QT prolonged [None]
  - Rash maculo-papular [Recovering/Resolving]
